FAERS Safety Report 14525161 (Version 3)
Quarter: 2018Q1

REPORT INFORMATION
  Report Type: Spontaneous
  Country: JP (occurrence: JP)
  Receive Date: 20180213
  Receipt Date: 20180323
  Transmission Date: 20180509
  Serious: Yes (Other)
  Sender: FDA-Public Use
  Company Number: JP-GLAXOSMITHKLINE-JP2018JPN020382

PATIENT
  Age: 42 Year
  Sex: Female

DRUGS (2)
  1. ZANTAC [Suspect]
     Active Substance: RANITIDINE HYDROCHLORIDE
     Dosage: 150 MG, QD
     Route: 048
     Dates: start: 20180205
  2. SENNOSIDE [Concomitant]
     Active Substance: SENNOSIDES
     Dosage: 20 MG, 1D
     Dates: start: 20180205

REACTIONS (8)
  - Throat irritation [Unknown]
  - Dyspnoea [Unknown]
  - Exposure during pregnancy [Unknown]
  - Anaphylactoid reaction [Unknown]
  - Sneezing [Unknown]
  - Gingival swelling [Unknown]
  - Pharyngeal oedema [Unknown]
  - Cough [Unknown]

NARRATIVE: CASE EVENT DATE: 20180205
